FAERS Safety Report 7944031-3 (Version None)
Quarter: 2011Q4

REPORT INFORMATION
  Report Type: 
  Country: None (occurrence: None)
  Receive Date: 20111128
  Receipt Date: 20111118
  Transmission Date: 20120403
  Serious: Yes (Other)
  Sender: FDA-Public Use
  Company Number: GB-ASTRAZENECA-2011SE70024

PATIENT
  Age: 57 Year
  Sex: Female
  Weight: 97.5 kg

DRUGS (9)
  1. ONDANSETRON [Concomitant]
  2. DEXAMETHASONE [Concomitant]
  3. EPIRUBICIN [Concomitant]
  4. ANASTROZOLE [Suspect]
     Indication: BREAST CANCER
     Route: 048
     Dates: start: 20110901, end: 20110920
  5. LANSOPRAZOLE [Concomitant]
  6. FOLIC ACID [Concomitant]
  7. METOCLOPRAMIDE [Concomitant]
  8. CITALOPRAM HYDROBROMIDE [Concomitant]
  9. CYCLOPHOSPHAMIDE [Concomitant]

REACTIONS (2)
  - BLISTER [None]
  - STEVENS-JOHNSON SYNDROME [None]
